FAERS Safety Report 9515688 (Version 1)
Quarter: 2013Q1

REPORT INFORMATION
  Report Type: Spontaneous
  Country: US (occurrence: None)
  Receive Date: 20130305
  Receipt Date: 20130305
  Transmission Date: 20140127
  Serious: Yes (Other)
  Sender: FDA-Public Use
  Company Number: 163-21880-12122894

PATIENT
  Age: 78 Year
  Sex: Female

DRUGS (8)
  1. REVLIMID [Suspect]
     Indication: PLASMA CELL MYELOMA
     Dosage: 21 IN 28 D
     Route: 048
     Dates: start: 20120109
  2. FLUVIRIN MULTIDOSE (INFLUENZA VIRUS VACCINE POLYVALENT) (UNKNOWN) [Concomitant]
  3. ACYCLOVIR (ACICLOVIR) (UNKNOWN) [Concomitant]
  4. MULTIVIT (MULTIVIT) UNKNOWN [Concomitant]
  5. HYDROCODONE/APAP (VICODIN) (UNKNOWN) [Concomitant]
  6. DEXAMETHASONE (DEXAMETHASONE) (TABLETS) [Concomitant]
  7. ALKERAN (MELPHALAN) (TABLETS) [Concomitant]
  8. MORPHINE SULFATE (MORPHINE SULPHATE) (TABLETS) [Concomitant]

REACTIONS (1)
  - White blood cell count decreased [None]
